FAERS Safety Report 7882756-9 (Version None)
Quarter: 2011Q4

REPORT INFORMATION
  Report Type: 
  Country: None (occurrence: None)
  Receive Date: 20111101
  Receipt Date: 20110620
  Transmission Date: 20120403
  Serious: Yes (Other)
  Sender: FDA-Public Use
  Company Number: US-AMGEN-USASP2011031432

PATIENT
  Sex: Female

DRUGS (1)
  1. ENBREL [Suspect]
     Indication: TUMOUR NECROSIS FACTOR RECEPTOR-ASSOCIATED PERIODIC SYNDROME
     Dosage: 50 MG, QWK

REACTIONS (4)
  - FATIGUE [None]
  - INJECTION SITE PAIN [None]
  - CONVULSION [None]
  - INJECTION SITE SWELLING [None]
